FAERS Safety Report 15793594 (Version 2)
Quarter: 2019Q1

REPORT INFORMATION
  Report Type: Spontaneous
  Country: US (occurrence: US)
  Receive Date: 20190107
  Receipt Date: 20190111
  Transmission Date: 20190417
  Serious: No
  Sender: FDA-Public Use
  Company Number: US-PFIZER INC-2019004931

PATIENT
  Sex: Female

DRUGS (1)
  1. NORVASC [Suspect]
     Active Substance: AMLODIPINE BESYLATE
     Indication: HYPERTENSION
     Dosage: 7.5 MG, DAILY (1 MORNING 2 AT NIGHT)

REACTIONS (4)
  - Atrial tachycardia [Unknown]
  - Heart rate irregular [Unknown]
  - Product use issue [Unknown]
  - Palpitations [Unknown]
